FAERS Safety Report 8523337-3 (Version None)
Quarter: 2012Q3

REPORT INFORMATION
  Report Type: 
  Country: None (occurrence: None)
  Receive Date: 20120709
  Receipt Date: 20120622
  Transmission Date: 20120928
  Serious: Yes (Hospitalization)
  Sender: FDA-Public Use
  Company Number: 1259710

PATIENT
  Age: 73 Year
  Sex: Male

DRUGS (6)
  1. IRINOTECAN HYDROCHLORIDE [Suspect]
     Indication: RECTAL CANCER RECURRENT
     Dates: end: 20101117
  2. LEUCOVORIN CALCIUM [Suspect]
     Indication: RECTAL CANCER RECURRENT
     Dates: end: 20101117
  3. OXALIPLATIN [Suspect]
     Indication: RECTAL CANCER RECURRENT
     Dates: start: 20101201
  4. FLUOROURACIL [Suspect]
     Indication: RECTAL CANCER RECURRENT
     Dates: end: 20101117
  5. FLUOROURACIL [Suspect]
     Indication: RECTAL CANCER RECURRENT
     Dates: start: 20101201
  6. (CETUXIAMB) [Suspect]
     Indication: RECTAL CANCER RECURRENT
     Dates: end: 20101117

REACTIONS (4)
  - PNEUMOPERITONEUM [None]
  - PNEUMATOSIS INTESTINALIS [None]
  - DRUG INEFFECTIVE [None]
  - SKIN TOXICITY [None]
